FAERS Safety Report 6419771-8 (Version None)
Quarter: 2009Q4

REPORT INFORMATION
  Report Type: 
  Country: None (occurrence: None)
  Receive Date: 20091029
  Receipt Date: 20091019
  Transmission Date: 20100525
  Serious: Yes (Other)
  Sender: FDA-Public Use
  Company Number: US-WYE-H11686409

PATIENT
  Sex: Female

DRUGS (2)
  1. EFFEXOR XR [Suspect]
     Indication: DEPRESSION
     Route: 048
     Dates: start: 20010101, end: 20090101
  2. EFFEXOR XR [Suspect]
     Dosage: TAPERING OFF AT UNSPECIFIED DOSES
     Route: 048
     Dates: start: 20090101, end: 20091014

REACTIONS (6)
  - CONFUSIONAL STATE [None]
  - DEHYDRATION [None]
  - DIZZINESS [None]
  - DRUG WITHDRAWAL SYNDROME [None]
  - NAUSEA [None]
  - VOMITING [None]
